FAERS Safety Report 20014342 (Version 1)
Quarter: 2021Q4

REPORT INFORMATION
  Report Type: Report from Study
  Country: FR (occurrence: FR)
  Receive Date: 20211029
  Receipt Date: 20211029
  Transmission Date: 20220303
  Serious: Yes (Hospitalization, Other)
  Sender: FDA-Public Use
  Company Number: FR-SERVIER-S20004110

PATIENT

DRUGS (7)
  1. ONCASPAR [Suspect]
     Active Substance: PEGASPARGASE
     Indication: Acute lymphocytic leukaemia
     Dosage: 1350 IU (1250 IU/M2), ON D12, D26
     Route: 042
     Dates: start: 20200327, end: 20200410
  2. VINCRISTINE SULFATE [Suspect]
     Active Substance: VINCRISTINE SULFATE
     Indication: Acute lymphocytic leukaemia
     Dosage: 1.65 MG, D8, D15, D22, D29
     Route: 042
     Dates: start: 20200323, end: 20200406
  3. DAUNORUBICIN HYDROCHLORIDE [Suspect]
     Active Substance: DAUNORUBICIN HYDROCHLORIDE
     Indication: Acute lymphocytic leukaemia
     Dosage: 33 MG, D8, D15, D22, D29
     Route: 042
     Dates: start: 20200323, end: 20200406
  4. PREDNISOLONE [Suspect]
     Active Substance: PREDNISOLONE
     Indication: Acute lymphocytic leukaemia
     Dosage: 65 MG, D8 TO D29
     Route: 048
     Dates: start: 20200320, end: 20200412
  5. METHOTREXATE [Concomitant]
     Active Substance: METHOTREXATE
     Indication: Acute lymphocytic leukaemia
     Dosage: 15 MG, D9, D13, D18, D24
     Route: 037
     Dates: start: 20200325, end: 20200408
  6. HYDROCORTISONE [Suspect]
     Active Substance: HYDROCORTISONE
     Indication: Acute lymphocytic leukaemia
     Dosage: 15 MG , D9, D13, D18, D24
     Route: 037
     Dates: start: 20200325, end: 20200408
  7. CYTARABINE [Concomitant]
     Active Substance: CYTARABINE
     Indication: Acute lymphocytic leukaemia
     Dosage: 30 MG, D9, D13, D18, D24
     Route: 037
     Dates: start: 20200325, end: 20200408

REACTIONS (7)
  - Colitis [Recovered/Resolved]
  - Bacterial sepsis [Recovered/Resolved]
  - Glucose tolerance impaired [Recovered/Resolved]
  - Hypofibrinogenaemia [Recovered/Resolved]
  - Pancreatitis [Recovered/Resolved]
  - Lipase increased [Recovered/Resolved]
  - Hyperglycaemia [Recovered/Resolved with Sequelae]

NARRATIVE: CASE EVENT DATE: 20200328
